FAERS Safety Report 5338196-X (Version None)
Quarter: 2007Q2

REPORT INFORMATION
  Report Type: 
  Country: None (occurrence: None)
  Receive Date: 20070327
  Receipt Date: 20070202
  Transmission Date: 20071010
  Serious: Yes (Other)
  Sender: FDA-Public Use
  Company Number: 236038

PATIENT

DRUGS (3)
  1. AVASTIN [Suspect]
     Indication: NON-SMALL CELL LUNG CANCER
     Dosage: 15 MG/KG, Q3W, INTRAVENOUS
     Route: 042
  2. CARBOPLATIN [Concomitant]
  3. PACLITAXEL [Concomitant]

REACTIONS (1)
  - DEEP VEIN THROMBOSIS [None]
